FAERS Safety Report 6898645-2 (Version None)
Quarter: 2010Q3

REPORT INFORMATION
  Report Type: 
  Country: None (occurrence: None)
  Receive Date: 20100802
  Receipt Date: 20071110
  Transmission Date: 20110219
  Serious: Yes (Other)
  Sender: FDA-Public Use
  Company Number: US-PFIZER INC-2007081402

PATIENT
  Sex: Female
  Weight: 81.818 kg

DRUGS (10)
  1. LYRICA [Suspect]
     Indication: NEUROPATHY PERIPHERAL
     Dosage: 75MG TID EVERY DAY TDD:225MG
     Dates: start: 20070401
  2. ZANTAC [Concomitant]
  3. BENTYL [Concomitant]
  4. MIAZIDE [Concomitant]
  5. LOMOTIL [Concomitant]
  6. DONNATAL [Concomitant]
  7. INDERAL [Concomitant]
  8. PREMARIN [Concomitant]
  9. DARVOCET [Concomitant]
  10. COMPAZINE [Concomitant]

REACTIONS (4)
  - BONE PAIN [None]
  - INCONTINENCE [None]
  - OEDEMA PERIPHERAL [None]
  - SWELLING [None]
